FAERS Safety Report 10185080 (Version 1)
Quarter: 2014Q2

REPORT INFORMATION
  Report Type: Spontaneous
  Country: US (occurrence: US)
  Receive Date: 20140521
  Receipt Date: 20140521
  Transmission Date: 20141212
  Serious: Yes (Life-Threatening)
  Sender: FDA-Public Use
  Company Number: US-B.I. PHARMACEUTICALS,INC./RIDGEFIELD-2014-BI-21911BP

PATIENT
  Age: 55 Year
  Sex: Female

DRUGS (2)
  1. IPRATROPIUM BROMIDE NASAL SOLUTION, 0.03% [Suspect]
     Indication: PRODUCT USED FOR UNKNOWN INDICATION
     Route: 065
  2. ALBUTEROL SULFATE [Suspect]
     Indication: PRODUCT USED FOR UNKNOWN INDICATION
     Route: 065

REACTIONS (1)
  - Anaphylactic reaction [Unknown]
